FAERS Safety Report 5853262-8 (Version None)
Quarter: 2008Q3

REPORT INFORMATION
  Report Type: 
  Country: None (occurrence: None)
  Receive Date: 20080820
  Receipt Date: 20080807
  Transmission Date: 20090109
  Serious: Yes (Hospitalization)
  Sender: FDA-Public Use
  Company Number: DSU-2008-01202

PATIENT
  Sex: Male

DRUGS (3)
  1. BENICAR [Suspect]
     Indication: HYPERTENSION
     Dosage: PER ORAL
     Dates: start: 20070101
  2. DILTIAZEM [Concomitant]
  3. COUMADIN [Concomitant]

REACTIONS (3)
  - CARDIAC OPERATION [None]
  - NEUROPATHY PERIPHERAL [None]
  - PROTEIN TOTAL INCREASED [None]
